FAERS Safety Report 13271035 (Version 1)
Quarter: 2017Q1

REPORT INFORMATION
  Report Type: Spontaneous
  Country: US (occurrence: US)
  Receive Date: 20170226
  Receipt Date: 20170226
  Transmission Date: 20170428
  Serious: No
  Sender: FDA-Public Use
  Company Number: US-BIOGEN-2017BI00359946

PATIENT
  Sex: Female

DRUGS (1)
  1. TECFIDERA [Suspect]
     Active Substance: DIMETHYL FUMARATE
     Indication: MULTIPLE SCLEROSIS
     Route: 065
     Dates: start: 20151008

REACTIONS (6)
  - Malaise [Unknown]
  - Dizziness [Unknown]
  - Musculoskeletal disorder [Unknown]
  - Back disorder [Unknown]
  - Confusional state [Unknown]
  - Amnesia [Unknown]
